FAERS Safety Report 9271910 (Version 2)
Quarter: 2013Q2

REPORT INFORMATION
  Report Type: Spontaneous
  Country: US (occurrence: US)
  Receive Date: 20130506
  Receipt Date: 20130614
  Transmission Date: 20140414
  Serious: No
  Sender: FDA-Public Use
  Company Number: US-PFIZER INC-2013136818

PATIENT
  Age: 54 Year
  Sex: Female
  Weight: 94.79 kg

DRUGS (8)
  1. CELEBREX [Suspect]
     Indication: ARTHRITIS
     Dosage: 100 MG, 2X/DAY
  2. LYRICA [Suspect]
     Indication: FIBROMYALGIA
     Dosage: 150 MG, 3X/DAY
  3. ESTRADIOL [Suspect]
     Dosage: UNK
  4. LAMICTAL [Suspect]
     Indication: NERVE INJURY
     Dosage: 200 MG, 2X/DAY
  5. LORCET [Suspect]
     Indication: PAIN
     Dosage: 10/650 MG, AS NEEDED
  6. MIRAPEX [Suspect]
     Dosage: UNK
  7. METHOCARBAMOL [Suspect]
     Dosage: UNK
  8. DYAZIDE [Concomitant]
     Indication: FLUID RETENTION
     Dosage: UNK

REACTIONS (7)
  - Drug dose omission [Unknown]
  - Off label use [Unknown]
  - Cold sweat [Unknown]
  - Gastric disorder [Unknown]
  - Anxiety [Unknown]
  - Discomfort [Unknown]
  - Withdrawal syndrome [Unknown]
